FAERS Safety Report 11953817 (Version 7)
Quarter: 2016Q2

REPORT INFORMATION
  Report Type: Spontaneous
  Country: US (occurrence: US)
  Receive Date: 20160126
  Receipt Date: 20160506
  Transmission Date: 20160815
  Serious: No
  Sender: FDA-Public Use
  Company Number: US-PFIZER INC-2016015909

PATIENT
  Age: 51 Year
  Sex: Male
  Weight: 61 kg

DRUGS (7)
  1. KLONOPIN [Concomitant]
     Active Substance: CLONAZEPAM
     Dosage: UNK
  2. METFORMIN [Concomitant]
     Active Substance: METFORMIN HYDROCHLORIDE
     Dosage: UNK
  3. COMPAZINE [Concomitant]
     Active Substance: PROCHLORPERAZINE MALEATE
     Dosage: UNK
  4. PRILOSEC [Concomitant]
     Active Substance: OMEPRAZOLE MAGNESIUM
     Dosage: UNK
  5. AMBIEN [Concomitant]
     Active Substance: ZOLPIDEM TARTRATE
     Dosage: UNK
  6. MORPHINE [Concomitant]
     Active Substance: MORPHINE
     Dosage: UNK
  7. SUTENT [Suspect]
     Active Substance: SUNITINIB MALATE
     Indication: RENAL CANCER STAGE IV
     Dosage: 50 MG, CYCLIC (28 DAYS ON/14 DAYS OFF)
     Dates: start: 20151230, end: 20160425

REACTIONS (13)
  - Nausea [Recovering/Resolving]
  - Oral pain [Unknown]
  - Disease progression [Unknown]
  - Hair colour changes [Unknown]
  - Fatigue [Unknown]
  - Bone pain [Unknown]
  - Abdominal discomfort [Unknown]
  - Mouth ulceration [Unknown]
  - Ear haemorrhage [Unknown]
  - Abdominal pain upper [Unknown]
  - Dyspepsia [Unknown]
  - Alopecia [Unknown]
  - Renal cancer stage IV [Unknown]
